FAERS Safety Report 8375796-7 (Version None)
Quarter: 2012Q2

REPORT INFORMATION
  Report Type: 
  Country: None (occurrence: None)
  Receive Date: 20120518
  Receipt Date: 20120518
  Transmission Date: 20120825
  Serious: No
  Sender: FDA-Public Use
  Company Number: None

PATIENT
  Sex: Male
  Weight: 112.4921 kg

DRUGS (1)
  1. MIRAPEX ER [Suspect]
     Indication: PARKINSONISM
     Dosage: 3.0 MG DAILY PO
     Route: 048
     Dates: start: 20090103, end: 20120517

REACTIONS (1)
  - PATHOLOGICAL GAMBLING [None]
